APPROVED DRUG PRODUCT: BEXAROTENE
Active Ingredient: BEXAROTENE
Strength: 75MG
Dosage Form/Route: CAPSULE;ORAL
Application: A209861 | Product #001 | TE Code: AB
Applicant: ANI PHARMACEUTICALS INC
Approved: May 8, 2018 | RLD: No | RS: No | Type: RX